FAERS Safety Report 18192166 (Version 1)
Quarter: 2020Q3

REPORT INFORMATION
  Report Type: Spontaneous
  Country: US (occurrence: US)
  Receive Date: 20200824
  Receipt Date: 20200824
  Transmission Date: 20201103
  Serious: Yes (Life-Threatening, Hospitalization)
  Sender: FDA-Public Use
  Company Number: None

PATIENT
  Age: 50 Year
  Sex: Male
  Weight: 78.75 kg

DRUGS (5)
  1. MULTIVITAMIN [Concomitant]
     Active Substance: VITAMINS
  2. CIPROFLOXACIN 500MG TAB AUR [Suspect]
     Active Substance: CIPROFLOXACIN HYDROCHLORIDE
     Indication: DIVERTICULITIS
     Dosage: ?          QUANTITY:1 TABLET(S);?
     Route: 048
     Dates: start: 20200811, end: 20200819
  3. METRONIDAZOLE. [Suspect]
     Active Substance: METRONIDAZOLE
  4. VITAMIN B12 [Concomitant]
     Active Substance: CYANOCOBALAMIN
  5. VIT D [Concomitant]
     Active Substance: VITAMIN D NOS

REACTIONS (3)
  - Crying [None]
  - Suicidal ideation [None]
  - Adjustment disorder with depressed mood [None]

NARRATIVE: CASE EVENT DATE: 20200811
